FAERS Safety Report 14473933 (Version 1)
Quarter: 2018Q1

REPORT INFORMATION
  Report Type: Spontaneous
  Country: US (occurrence: US)
  Receive Date: 20180201
  Receipt Date: 20180201
  Transmission Date: 20180509
  Serious: Yes (Hospitalization)
  Sender: FDA-Public Use
  Company Number: US-TARO PHARMACEUTICALS USA.,INC-2018SUN00050

PATIENT
  Age: 43 Year
  Sex: Female

DRUGS (1)
  1. WARFARIN [Suspect]
     Active Substance: WARFARIN
     Indication: ANTICOAGULANT THERAPY
     Dosage: UNK
     Route: 065

REACTIONS (4)
  - Infected skin ulcer [Recovering/Resolving]
  - Calciphylaxis [Recovering/Resolving]
  - Acute kidney injury [Recovered/Resolved]
  - Sepsis syndrome [Recovering/Resolving]
